FAERS Safety Report 17219329 (Version 1)
Quarter: 2019Q4

REPORT INFORMATION
  Report Type: Spontaneous
  Country: US (occurrence: US)
  Receive Date: 20191209
  Receipt Date: 20191209
  Transmission Date: 20200122
  Serious: Yes (Hospitalization)
  Sender: FDA-Public Use
  Company Number: None

PATIENT
  Age: 69 Year
  Sex: Male

DRUGS (1)
  1. CEFAZOLIN (CEFAZOLIN NA 1GM/BAG INJ) [Suspect]
     Active Substance: CEFAZOLIN SODIUM
     Indication: ANTIBIOTIC PROPHYLAXIS
     Route: 042
     Dates: start: 20191110, end: 20191111

REACTIONS (1)
  - Clostridium difficile colitis [None]

NARRATIVE: CASE EVENT DATE: 20191012
